FAERS Safety Report 4638619-5 (Version None)
Quarter: 2005Q2

REPORT INFORMATION
  Report Type: 
  Country: None (occurrence: None)
  Receive Date: 20050415
  Receipt Date: 20050415
  Transmission Date: 20051028
  Serious: Yes (Other)
  Sender: FDA-Public Use
  Company Number: None

PATIENT
  Sex: Female

DRUGS (1)
  1. OXYCODONE  / APAP  5 / 325MG TABS [Suspect]
     Indication: PAIN
     Dosage: 5/325  PO Q4H  PRN
     Route: 048
     Dates: start: 20050216

REACTIONS (2)
  - HEART RATE INCREASED [None]
  - PHARMACEUTICAL PRODUCT COMPLAINT [None]
